FAERS Safety Report 5058943-4 (Version None)
Quarter: 2006Q3

REPORT INFORMATION
  Report Type: 
  Country: None (occurrence: None)
  Receive Date: 20060721
  Receipt Date: 20060712
  Transmission Date: 20061208
  Serious: Yes (Other)
  Sender: FDA-Public Use
  Company Number: PHNU2006DE02508

PATIENT
  Sex: Male

DRUGS (4)
  1. TRILEPTAL [Suspect]
     Indication: EPILEPSY
     Dosage: 1 DF, BID
     Route: 048
     Dates: start: 20050101
  2. TRILEPTAL [Suspect]
     Dosage: 1500 MG/D (900-0-600)
  3. TRILEPTAL [Suspect]
     Dosage: 1 DF, BID
  4. TRILEPTAL [Suspect]
     Dosage: REIMPORT FROM SPAIN
     Dates: start: 20060501

REACTIONS (6)
  - AGITATION [None]
  - CONDITION AGGRAVATED [None]
  - CONFUSIONAL STATE [None]
  - CONVULSION [None]
  - DEPRESSION [None]
  - NERVOUSNESS [None]
